FAERS Safety Report 7291877-3 (Version None)
Quarter: 2011Q1

REPORT INFORMATION
  Report Type: 
  Country: None (occurrence: None)
  Receive Date: 20110214
  Receipt Date: 20110207
  Transmission Date: 20110831
  Serious: Yes (Hospitalization)
  Sender: FDA-Public Use
  Company Number: US-US-EMD SERONO, INC.-7041179

PATIENT
  Sex: Female

DRUGS (9)
  1. ZANAFLEX [Concomitant]
  2. PROVIGIL [Concomitant]
  3. UNSPECIFIED ASSORTED VITAMINS [Concomitant]
  4. NEURONTIN [Concomitant]
  5. METHADONE HYDROCHLORIDE [Concomitant]
  6. LEXAPRO [Concomitant]
  7. TOPAMAX [Concomitant]
  8. REBIF [Suspect]
     Indication: MULTIPLE SCLEROSIS
     Route: 058
     Dates: start: 20030101, end: 20110101
  9. ZOFRAN [Concomitant]

REACTIONS (1)
  - LOCALISED INFECTION [None]
